FAERS Safety Report 18318270 (Version 1)
Quarter: 2020Q3

REPORT INFORMATION
  Report Type: Spontaneous
  Country: US (occurrence: US)
  Receive Date: 20200925
  Receipt Date: 20200925
  Transmission Date: 20201103
  Serious: Yes (Death, Hospitalization)
  Sender: FDA-Public Use
  Company Number: None

PATIENT
  Age: 66 Year
  Sex: Female

DRUGS (1)
  1. REVLIMID [Suspect]
     Active Substance: LENALIDOMIDE
     Indication: PLASMA CELL MYELOMA
     Route: 048
     Dates: start: 20200428, end: 20200805

REACTIONS (3)
  - Respiratory failure [None]
  - SARS-CoV-2 test positive [None]
  - Acute respiratory distress syndrome [None]

NARRATIVE: CASE EVENT DATE: 20200805
